FAERS Safety Report 14247102 (Version 6)
Quarter: 2019Q2

REPORT INFORMATION
  Report Type: Spontaneous
  Country: US (occurrence: US)
  Receive Date: 20171204
  Receipt Date: 20190405
  Transmission Date: 20190711
  Serious: No
  Sender: FDA-Public Use
  Company Number: US-PFIZER INC-2017514619

PATIENT
  Age: 73 Year
  Sex: Female

DRUGS (1)
  1. ZITHROMAX [Suspect]
     Active Substance: AZITHROMYCIN DIHYDRATE
     Indication: OSTEOMYELITIS
     Dosage: UNK

REACTIONS (3)
  - Poor quality sleep [Unknown]
  - Malaise [Unknown]
  - Memory impairment [Unknown]
